FAERS Safety Report 6571444-7 (Version None)
Quarter: 2010Q1

REPORT INFORMATION
  Report Type: 
  Country: None (occurrence: None)
  Receive Date: 20100205
  Receipt Date: 20100122
  Transmission Date: 20100710
  Serious: Yes (Other)
  Sender: FDA-Public Use
  Company Number: BE-PFIZER INC-2010005125

PATIENT
  Age: 62 Year
  Sex: Female

DRUGS (4)
  1. CHAMPIX [Suspect]
     Indication: SMOKING CESSATION THERAPY
     Dosage: 1 MG, 2X/DAY
     Route: 048
     Dates: start: 20091208, end: 20100111
  2. SIMVASTATIN [Concomitant]
     Dosage: UNK
  3. CIPRALEX [Concomitant]
     Dosage: UNK
  4. LANSOPRAZOL [Concomitant]
     Dosage: UNK

REACTIONS (2)
  - INFECTION [None]
  - LACRIMATION INCREASED [None]
